FAERS Safety Report 9447221 (Version 2)
Quarter: 2013Q4

REPORT INFORMATION
  Report Type: Spontaneous
  Country: US (occurrence: US)
  Receive Date: 20130807
  Receipt Date: 20131106
  Transmission Date: 20140711
  Serious: Yes (Hospitalization, Other)
  Sender: FDA-Public Use
  Company Number: US-ELI_LILLY_AND_COMPANY-US201307010897

PATIENT
  Age: 56 Year
  Sex: Male

DRUGS (3)
  1. HUMALOG LISPRO [Suspect]
     Indication: TYPE 1 DIABETES MELLITUS
     Dosage: 200 U, 2/W
     Route: 058
  2. HUMALOG LISPRO [Suspect]
     Dosage: UNK
     Route: 058
  3. LISINOPRIL [Concomitant]
     Indication: RENAL DISORDER

REACTIONS (6)
  - Diabetic ketoacidosis [Recovered/Resolved]
  - Dizziness [Recovered/Resolved]
  - Nausea [Recovered/Resolved]
  - Pollakiuria [Recovered/Resolved]
  - Thirst [Recovered/Resolved]
  - Drug ineffective [Recovered/Resolved]
